FAERS Safety Report 19465275 (Version 59)
Quarter: 2025Q2

REPORT INFORMATION
  Report Type: Spontaneous
  Country: GB (occurrence: GB)
  Receive Date: 20210624
  Receipt Date: 20250617
  Transmission Date: 20250717
  Serious: Yes (Other)
  Sender: JOHNSON AND JOHNSON
  Company Number: GB-PFIZER INC-2021156075

PATIENT
  Age: 29 Year
  Sex: Male

DRUGS (164)
  1. TOPAMAX [Suspect]
     Active Substance: TOPIRAMATE
     Indication: Product used for unknown indication
     Route: 048
  2. TOPAMAX [Suspect]
     Active Substance: TOPIRAMATE
     Route: 048
  3. TOPAMAX [Suspect]
     Active Substance: TOPIRAMATE
     Route: 048
  4. TOPAMAX [Suspect]
     Active Substance: TOPIRAMATE
     Route: 048
  5. TOPAMAX [Suspect]
     Active Substance: TOPIRAMATE
     Route: 048
  6. TOPAMAX [Suspect]
     Active Substance: TOPIRAMATE
     Route: 048
  7. TOPAMAX [Suspect]
     Active Substance: TOPIRAMATE
     Route: 048
  8. TOPAMAX [Suspect]
     Active Substance: TOPIRAMATE
     Route: 048
  9. TOPAMAX [Suspect]
     Active Substance: TOPIRAMATE
     Route: 048
  10. TOPAMAX [Suspect]
     Active Substance: TOPIRAMATE
     Route: 048
  11. TOPAMAX [Suspect]
     Active Substance: TOPIRAMATE
     Route: 048
  12. TOPAMAX [Suspect]
     Active Substance: TOPIRAMATE
     Route: 048
  13. TOPAMAX [Suspect]
     Active Substance: TOPIRAMATE
     Route: 048
  14. THIAMINE HYDROCHLORIDE [Suspect]
     Active Substance: THIAMINE HYDROCHLORIDE
     Indication: Product used for unknown indication
     Route: 065
  15. PREGABALIN [Suspect]
     Active Substance: PREGABALIN
     Indication: Product used for unknown indication
  16. PREGABALIN [Suspect]
     Active Substance: PREGABALIN
  17. PREGABALIN [Suspect]
     Active Substance: PREGABALIN
  18. PREGABALIN [Suspect]
     Active Substance: PREGABALIN
  19. PREGABALIN [Suspect]
     Active Substance: PREGABALIN
  20. PREGABALIN [Suspect]
     Active Substance: PREGABALIN
  21. PREGABALIN [Suspect]
     Active Substance: PREGABALIN
  22. PREGABALIN [Suspect]
     Active Substance: PREGABALIN
     Route: 048
  23. PREGABALIN [Suspect]
     Active Substance: PREGABALIN
     Route: 048
  24. PREGABALIN [Suspect]
     Active Substance: PREGABALIN
     Route: 065
  25. PREGABALIN [Suspect]
     Active Substance: PREGABALIN
     Route: 065
  26. PREGABALIN [Suspect]
     Active Substance: PREGABALIN
     Route: 065
  27. PREGABALIN [Suspect]
     Active Substance: PREGABALIN
     Route: 065
  28. AMITRIPTYLINE HYDROCHLORIDE [Suspect]
     Active Substance: AMITRIPTYLINE HYDROCHLORIDE
     Indication: Product used for unknown indication
     Dates: start: 2017, end: 2017
  29. AMITRIPTYLINE HYDROCHLORIDE [Suspect]
     Active Substance: AMITRIPTYLINE HYDROCHLORIDE
     Indication: Product used for unknown indication
     Dosage: UNK, QD
     Dates: start: 2017, end: 2017
  30. AMITRIPTYLINE HYDROCHLORIDE [Suspect]
     Active Substance: AMITRIPTYLINE HYDROCHLORIDE
     Dosage: UNK, QD
     Route: 048
     Dates: start: 2017, end: 2018
  31. AMITRIPTYLINE HYDROCHLORIDE [Suspect]
     Active Substance: AMITRIPTYLINE HYDROCHLORIDE
     Dosage: UNK, QD
     Route: 048
  32. AMITRIPTYLINE HYDROCHLORIDE [Suspect]
     Active Substance: AMITRIPTYLINE HYDROCHLORIDE
     Dosage: UNK UNK, QD (ORAL LIQUID)
     Route: 048
     Dates: start: 2017, end: 2018
  33. AMITRIPTYLINE HYDROCHLORIDE [Suspect]
     Active Substance: AMITRIPTYLINE HYDROCHLORIDE
     Dosage: UNK UNK, QD
     Route: 030
     Dates: start: 2018, end: 2018
  34. AMITRIPTYLINE HYDROCHLORIDE [Suspect]
     Active Substance: AMITRIPTYLINE HYDROCHLORIDE
     Route: 030
     Dates: start: 2017, end: 2018
  35. TRAZODONE HYDROCHLORIDE [Suspect]
     Active Substance: TRAZODONE HYDROCHLORIDE
     Indication: Product used for unknown indication
  36. TRAZODONE HYDROCHLORIDE [Suspect]
     Active Substance: TRAZODONE HYDROCHLORIDE
     Indication: Product used for unknown indication
  37. TRAZODONE HYDROCHLORIDE [Suspect]
     Active Substance: TRAZODONE HYDROCHLORIDE
  38. TRAZODONE HYDROCHLORIDE [Suspect]
     Active Substance: TRAZODONE HYDROCHLORIDE
  39. TRAZODONE HYDROCHLORIDE [Suspect]
     Active Substance: TRAZODONE HYDROCHLORIDE
  40. TRAZODONE HYDROCHLORIDE [Suspect]
     Active Substance: TRAZODONE HYDROCHLORIDE
  41. TRAZODONE HYDROCHLORIDE [Suspect]
     Active Substance: TRAZODONE HYDROCHLORIDE
     Dosage: UNK, QD, ORAL LIQUID
     Route: 048
  42. TRAZODONE HYDROCHLORIDE [Suspect]
     Active Substance: TRAZODONE HYDROCHLORIDE
  43. TRAZODONE HYDROCHLORIDE [Suspect]
     Active Substance: TRAZODONE HYDROCHLORIDE
     Route: 065
  44. TRAZODONE HYDROCHLORIDE [Suspect]
     Active Substance: TRAZODONE HYDROCHLORIDE
     Route: 065
  45. TRAZODONE HYDROCHLORIDE [Suspect]
     Active Substance: TRAZODONE HYDROCHLORIDE
     Route: 065
  46. TRAZODONE HYDROCHLORIDE [Suspect]
     Active Substance: TRAZODONE HYDROCHLORIDE
     Route: 065
  47. TRAZODONE HYDROCHLORIDE [Suspect]
     Active Substance: TRAZODONE HYDROCHLORIDE
     Route: 065
  48. PROTHIADEN [Suspect]
     Active Substance: DOTHIEPIN HYDROCHLORIDE
     Indication: Product used for unknown indication
  49. PROTHIADEN [Suspect]
     Active Substance: DOTHIEPIN HYDROCHLORIDE
     Indication: Product used for unknown indication
  50. PROTHIADEN [Suspect]
     Active Substance: DOTHIEPIN HYDROCHLORIDE
  51. PROTHIADEN [Suspect]
     Active Substance: DOTHIEPIN HYDROCHLORIDE
  52. PROTHIADEN [Suspect]
     Active Substance: DOTHIEPIN HYDROCHLORIDE
  53. PROTHIADEN [Suspect]
     Active Substance: DOTHIEPIN HYDROCHLORIDE
  54. PROTHIADEN [Suspect]
     Active Substance: DOTHIEPIN HYDROCHLORIDE
  55. PROTHIADEN [Suspect]
     Active Substance: DOTHIEPIN HYDROCHLORIDE
  56. PROTHIADEN [Suspect]
     Active Substance: DOTHIEPIN HYDROCHLORIDE
  57. PROTHIADEN [Suspect]
     Active Substance: DOTHIEPIN HYDROCHLORIDE
  58. PROTHIADEN [Suspect]
     Active Substance: DOTHIEPIN HYDROCHLORIDE
  59. PROTHIADEN [Suspect]
     Active Substance: DOTHIEPIN HYDROCHLORIDE
  60. PROTHIADEN [Suspect]
     Active Substance: DOTHIEPIN HYDROCHLORIDE
     Route: 048
  61. PROTHIADEN [Suspect]
     Active Substance: DOTHIEPIN HYDROCHLORIDE
     Route: 048
  62. PROTHIADEN [Suspect]
     Active Substance: DOTHIEPIN HYDROCHLORIDE
     Route: 048
  63. PROTHIADEN [Suspect]
     Active Substance: DOTHIEPIN HYDROCHLORIDE
     Route: 065
  64. PROTHIADEN [Suspect]
     Active Substance: DOTHIEPIN HYDROCHLORIDE
     Route: 065
  65. PROTHIADEN [Suspect]
     Active Substance: DOTHIEPIN HYDROCHLORIDE
     Route: 065
  66. DICLOFENAC SODIUM [Suspect]
     Active Substance: DICLOFENAC SODIUM
     Indication: Product used for unknown indication
  67. DICLOFENAC SODIUM [Suspect]
     Active Substance: DICLOFENAC SODIUM
     Indication: Product used for unknown indication
  68. DICLOFENAC SODIUM [Suspect]
     Active Substance: DICLOFENAC SODIUM
     Route: 065
  69. CYANOCOBALAMIN [Suspect]
     Active Substance: CYANOCOBALAMIN
     Indication: Product used for unknown indication
  70. CYANOCOBALAMIN [Suspect]
     Active Substance: CYANOCOBALAMIN
     Indication: Product used for unknown indication
  71. CYANOCOBALAMIN [Suspect]
     Active Substance: CYANOCOBALAMIN
  72. CYANOCOBALAMIN [Suspect]
     Active Substance: CYANOCOBALAMIN
  73. CYANOCOBALAMIN [Suspect]
     Active Substance: CYANOCOBALAMIN
  74. CYANOCOBALAMIN [Suspect]
     Active Substance: CYANOCOBALAMIN
  75. CYANOCOBALAMIN [Suspect]
     Active Substance: CYANOCOBALAMIN
  76. CYANOCOBALAMIN [Suspect]
     Active Substance: CYANOCOBALAMIN
  77. CYANOCOBALAMIN [Suspect]
     Active Substance: CYANOCOBALAMIN
  78. CYANOCOBALAMIN [Suspect]
     Active Substance: CYANOCOBALAMIN
  79. CYANOCOBALAMIN [Suspect]
     Active Substance: CYANOCOBALAMIN
  80. CYANOCOBALAMIN [Suspect]
     Active Substance: CYANOCOBALAMIN
     Route: 065
  81. VALPROIC ACID [Suspect]
     Active Substance: VALPROIC ACID
     Indication: Product used for unknown indication
  82. VALPROIC ACID [Suspect]
     Active Substance: VALPROIC ACID
  83. VALPROIC ACID [Suspect]
     Active Substance: VALPROIC ACID
  84. VALPROIC ACID [Suspect]
     Active Substance: VALPROIC ACID
     Route: 030
  85. VALPROIC ACID [Suspect]
     Active Substance: VALPROIC ACID
     Route: 065
  86. VALPROATE MAGNESIUM [Suspect]
     Active Substance: VALPROATE MAGNESIUM
     Indication: Product used for unknown indication
  87. VALPROATE MAGNESIUM [Suspect]
     Active Substance: VALPROATE MAGNESIUM
  88. VALPROATE MAGNESIUM [Suspect]
     Active Substance: VALPROATE MAGNESIUM
     Route: 065
  89. TRAZODONE HYDROCHLORIDE [Suspect]
     Active Substance: TRAZODONE HYDROCHLORIDE
     Indication: Product used for unknown indication
  90. TRAZODONE HYDROCHLORIDE [Suspect]
     Active Substance: TRAZODONE HYDROCHLORIDE
     Indication: Product used for unknown indication
  91. TRAZODONE HYDROCHLORIDE [Suspect]
     Active Substance: TRAZODONE HYDROCHLORIDE
  92. TRAZODONE HYDROCHLORIDE [Suspect]
     Active Substance: TRAZODONE HYDROCHLORIDE
  93. TRAZODONE HYDROCHLORIDE [Suspect]
     Active Substance: TRAZODONE HYDROCHLORIDE
  94. TRAZODONE HYDROCHLORIDE [Suspect]
     Active Substance: TRAZODONE HYDROCHLORIDE
     Dosage: UNK, QD ORAL LIQUID
  95. TRAZODONE HYDROCHLORIDE [Suspect]
     Active Substance: TRAZODONE HYDROCHLORIDE
  96. TRAZODONE HYDROCHLORIDE [Suspect]
     Active Substance: TRAZODONE HYDROCHLORIDE
  97. TRAZODONE HYDROCHLORIDE [Suspect]
     Active Substance: TRAZODONE HYDROCHLORIDE
  98. TRAZODONE HYDROCHLORIDE [Suspect]
     Active Substance: TRAZODONE HYDROCHLORIDE
     Dosage: UNK, QD ORAL LIQUID
  99. TRAZODONE HYDROCHLORIDE [Suspect]
     Active Substance: TRAZODONE HYDROCHLORIDE
     Dosage: UNK, QD ENDOTRACHEOPULMONARY INSTILLATION, POWDER AND SOLVENT FOR SOLUTION))
     Route: 048
  100. TRAZODONE HYDROCHLORIDE [Suspect]
     Active Substance: TRAZODONE HYDROCHLORIDE
  101. TRAZODONE HYDROCHLORIDE [Suspect]
     Active Substance: TRAZODONE HYDROCHLORIDE
  102. TRAZODONE HYDROCHLORIDE [Suspect]
     Active Substance: TRAZODONE HYDROCHLORIDE
  103. TRAZODONE HYDROCHLORIDE [Suspect]
     Active Substance: TRAZODONE HYDROCHLORIDE
  104. TRAZODONE HYDROCHLORIDE [Suspect]
     Active Substance: TRAZODONE HYDROCHLORIDE
     Dosage: UNK, QD (ORAL LIQUID)
     Route: 048
  105. TRAZODONE HYDROCHLORIDE [Suspect]
     Active Substance: TRAZODONE HYDROCHLORIDE
     Route: 065
  106. DOSULEPIN HYDROCHLORIDE [Suspect]
     Active Substance: DOTHIEPIN HYDROCHLORIDE
     Indication: Product used for unknown indication
     Route: 048
  107. DOSULEPIN HYDROCHLORIDE [Suspect]
     Active Substance: DOTHIEPIN HYDROCHLORIDE
     Route: 065
  108. DOSULEPIN HYDROCHLORIDE [Suspect]
     Active Substance: DOTHIEPIN HYDROCHLORIDE
     Route: 065
  109. PYRIDOXINE HYDROCHLORIDE [Suspect]
     Active Substance: PYRIDOXINE HYDROCHLORIDE
     Indication: Product used for unknown indication
  110. PYRIDOXINE HYDROCHLORIDE [Suspect]
     Active Substance: PYRIDOXINE HYDROCHLORIDE
     Indication: Product used for unknown indication
  111. PYRIDOXINE HYDROCHLORIDE [Suspect]
     Active Substance: PYRIDOXINE HYDROCHLORIDE
  112. PYRIDOXINE HYDROCHLORIDE [Suspect]
     Active Substance: PYRIDOXINE HYDROCHLORIDE
  113. PYRIDOXINE HYDROCHLORIDE [Suspect]
     Active Substance: PYRIDOXINE HYDROCHLORIDE
  114. PYRIDOXINE HYDROCHLORIDE [Suspect]
     Active Substance: PYRIDOXINE HYDROCHLORIDE
  115. PYRIDOXINE HYDROCHLORIDE [Suspect]
     Active Substance: PYRIDOXINE HYDROCHLORIDE
  116. PYRIDOXINE HYDROCHLORIDE [Suspect]
     Active Substance: PYRIDOXINE HYDROCHLORIDE
  117. PYRIDOXINE HYDROCHLORIDE [Suspect]
     Active Substance: PYRIDOXINE HYDROCHLORIDE
  118. PYRIDOXINE HYDROCHLORIDE [Suspect]
     Active Substance: PYRIDOXINE HYDROCHLORIDE
  119. PYRIDOXINE HYDROCHLORIDE [Suspect]
     Active Substance: PYRIDOXINE HYDROCHLORIDE
  120. PYRIDOXINE HYDROCHLORIDE [Suspect]
     Active Substance: PYRIDOXINE HYDROCHLORIDE
  121. PYRIDOXINE HYDROCHLORIDE [Suspect]
     Active Substance: PYRIDOXINE HYDROCHLORIDE
  122. PYRIDOXINE HYDROCHLORIDE [Suspect]
     Active Substance: PYRIDOXINE HYDROCHLORIDE
  123. PYRIDOXINE HYDROCHLORIDE [Suspect]
     Active Substance: PYRIDOXINE HYDROCHLORIDE
  124. PYRIDOXINE HYDROCHLORIDE [Suspect]
     Active Substance: PYRIDOXINE HYDROCHLORIDE
     Route: 065
  125. DOTHIEPIN HYDROCHLORIDE [Suspect]
     Active Substance: DOTHIEPIN HYDROCHLORIDE
     Indication: Product used for unknown indication
  126. DOTHIEPIN HYDROCHLORIDE [Suspect]
     Active Substance: DOTHIEPIN HYDROCHLORIDE
     Route: 065
  127. DOTHIEPIN HYDROCHLORIDE [Suspect]
     Active Substance: DOTHIEPIN HYDROCHLORIDE
     Route: 065
  128. ACETAMINOPHEN [Suspect]
     Active Substance: ACETAMINOPHEN
  129. ACETAMINOPHEN [Suspect]
     Active Substance: ACETAMINOPHEN
  130. ACETAMINOPHEN [Suspect]
     Active Substance: ACETAMINOPHEN
  131. ACETAMINOPHEN [Suspect]
     Active Substance: ACETAMINOPHEN
  132. ACETAMINOPHEN [Suspect]
     Active Substance: ACETAMINOPHEN
  133. ACETAMINOPHEN [Suspect]
     Active Substance: ACETAMINOPHEN
  134. ACETAMINOPHEN [Suspect]
     Active Substance: ACETAMINOPHEN
  135. ACETAMINOPHEN [Suspect]
     Active Substance: ACETAMINOPHEN
  136. ACETAMINOPHEN [Suspect]
     Active Substance: ACETAMINOPHEN
  137. ACETAMINOPHEN [Suspect]
     Active Substance: ACETAMINOPHEN
  138. ACETAMINOPHEN [Suspect]
     Active Substance: ACETAMINOPHEN
  139. ACETAMINOPHEN [Suspect]
     Active Substance: ACETAMINOPHEN
  140. ACETAMINOPHEN [Suspect]
     Active Substance: ACETAMINOPHEN
  141. ACETAMINOPHEN [Suspect]
     Active Substance: ACETAMINOPHEN
  142. ACETAMINOPHEN [Suspect]
     Active Substance: ACETAMINOPHEN
  143. ACETAMINOPHEN [Suspect]
     Active Substance: ACETAMINOPHEN
  144. AMITRIPTYLINE [Suspect]
     Active Substance: AMITRIPTYLINE
     Indication: Product used for unknown indication
     Route: 065
     Dates: start: 2017, end: 2017
  145. AMITRIPTYLINE [Suspect]
     Active Substance: AMITRIPTYLINE
     Dosage: UNK, ORAL LIQUID
     Route: 065
     Dates: start: 2017, end: 2018
  146. AMITRIPTYLINE [Suspect]
     Active Substance: AMITRIPTYLINE
     Route: 065
     Dates: start: 2017, end: 2018
  147. AMITRIPTYLINE [Suspect]
     Active Substance: AMITRIPTYLINE
     Route: 065
     Dates: start: 2017, end: 2018
  148. AMITRIPTYLINE [Suspect]
     Active Substance: AMITRIPTYLINE
     Route: 065
  149. SERTRALINE HYDROCHLORIDE [Suspect]
     Active Substance: SERTRALINE HYDROCHLORIDE
     Indication: Product used for unknown indication
     Route: 065
  150. BOTULINUM TOXIN TYPE A [Suspect]
     Active Substance: BOTULINUM TOXIN TYPE A
     Indication: Product used for unknown indication
     Route: 030
     Dates: start: 2018, end: 2018
  151. BOTULINUM TOXIN TYPE A [Suspect]
     Active Substance: BOTULINUM TOXIN TYPE A
     Route: 030
     Dates: start: 2017, end: 2018
  152. BOTULINUM TOXIN TYPE A [Suspect]
     Active Substance: BOTULINUM TOXIN TYPE A
     Dosage: UNK UNK, SINGLE; CYCLICAL
     Route: 030
     Dates: start: 2017, end: 2018
  153. BOTULINUM TOXIN TYPE A [Suspect]
     Active Substance: BOTULINUM TOXIN TYPE A
     Dosage: UNK, SINGLE
     Route: 030
     Dates: start: 2017, end: 2017
  154. BOTULINUM TOXIN TYPE A [Suspect]
     Active Substance: BOTULINUM TOXIN TYPE A
     Route: 030
     Dates: start: 2017, end: 2017
  155. VALPROATE [Suspect]
     Active Substance: VALPROIC ACID
     Indication: Product used for unknown indication
     Route: 065
  156. VALPROATE [Suspect]
     Active Substance: VALPROIC ACID
     Route: 065
  157. IBUPROFEN [Suspect]
     Active Substance: IBUPROFEN
     Indication: Product used for unknown indication
     Route: 065
  158. IBUPROFEN [Suspect]
     Active Substance: IBUPROFEN
     Route: 065
  159. IBUPROFEN [Suspect]
     Active Substance: IBUPROFEN
     Route: 065
  160. PYRIDOXINE HYDROCHLORIDE\THIAMINE HYDROCHLORIDE [Suspect]
     Active Substance: PYRIDOXINE HYDROCHLORIDE\THIAMINE HYDROCHLORIDE
     Indication: Product used for unknown indication
     Route: 065
  161. VITAMIN B [Suspect]
     Active Substance: VITAMIN B
     Indication: Product used for unknown indication
     Route: 065
  162. DICLOFENAC SODIUM [Suspect]
     Active Substance: DICLOFENAC SODIUM
     Indication: Product used for unknown indication
     Route: 065
  163. PYRIDOXINE HYDROCHLORIDE\THIAMINE HYDROCHLORIDE [Suspect]
     Active Substance: PYRIDOXINE HYDROCHLORIDE\THIAMINE HYDROCHLORIDE
     Indication: Product used for unknown indication
     Route: 065
  164. NIACINAMIDE\RIBOFLAVIN\THIAMINE HYDROCHLORIDE [Suspect]
     Active Substance: NIACINAMIDE\RIBOFLAVIN\THIAMINE HYDROCHLORIDE
     Indication: Product used for unknown indication

REACTIONS (6)
  - Back pain [Unknown]
  - Neck pain [Unknown]
  - Head discomfort [Unknown]
  - Migraine [Unknown]
  - Pain [Unknown]
  - Headache [Unknown]
